FAERS Safety Report 10152710 (Version 1)
Quarter: 2014Q2

REPORT INFORMATION
  Report Type: Spontaneous
  Country: US (occurrence: None)
  Receive Date: 20140502
  Receipt Date: 20140502
  Transmission Date: 20141212
  Serious: No
  Sender: FDA-Public Use
  Company Number: None

PATIENT
  Age: 12 Year
  Sex: Male
  Weight: 45.27 kg

DRUGS (2)
  1. QUETIAPINE [Suspect]
     Indication: AFFECTIVE DISORDER
  2. QUETIAPINE [Suspect]
     Indication: MENTAL DISORDER

REACTIONS (4)
  - Affective disorder [None]
  - Aggression [None]
  - Condition aggravated [None]
  - Product substitution issue [None]
